FAERS Safety Report 6028083-6 (Version None)
Quarter: 2009Q1

REPORT INFORMATION
  Report Type: 
  Country: None (occurrence: None)
  Receive Date: 20090102
  Receipt Date: 20081210
  Transmission Date: 20090719
  Serious: Yes (Hospitalization)
  Sender: FDA-Public Use
  Company Number: 2008-0011

PATIENT
  Age: 4 Year

DRUGS (5)
  1. CLEAR-ATADINE ORAL SOLUTION (MANUFACTURED BY SILARX) [Suspect]
     Dosage: ORAL
     Route: 048
  2. SINGULAIR [Concomitant]
  3. ALBUTEROL [Concomitant]
  4. PALMICORT [Concomitant]
  5. MYRALAX [Concomitant]

REACTIONS (3)
  - DYSGEUSIA [None]
  - PRODUCT QUALITY ISSUE [None]
  - THROAT IRRITATION [None]
